FAERS Safety Report 4877337-5 (Version None)
Quarter: 2006Q1

REPORT INFORMATION
  Report Type: 
  Country: None (occurrence: None)
  Receive Date: 20060106
  Receipt Date: 20051219
  Transmission Date: 20060701
  Serious: Yes (Hospitalization)
  Sender: FDA-Public Use
  Company Number: 200510440BYL

PATIENT
  Age: 80 Year
  Sex: Male
  Weight: 70 kg

DRUGS (7)
  1. GLUCOBAY [Suspect]
     Indication: DIABETES MELLITUS NON-INSULIN-DEPENDENT
     Dosage: 300 MG, TOTAL DAILY, ORAL
     Route: 048
     Dates: start: 20050801
  2. BASEN [Concomitant]
  3. COSPANON [Concomitant]
  4. GANATON [Concomitant]
  5. TAKEPRON [Concomitant]
  6. SENNOSIDE [Concomitant]
  7. AMARYL [Concomitant]

REACTIONS (6)
  - ATRIAL FIBRILLATION [None]
  - BILIARY TRACT INFECTION [None]
  - BLOOD GLUCOSE INCREASED [None]
  - DIABETES MELLITUS INADEQUATE CONTROL [None]
  - HEPATIC FUNCTION ABNORMAL [None]
  - INFLAMMATION [None]
